FAERS Safety Report 4960553-1 (Version None)
Quarter: 2006Q1

REPORT INFORMATION
  Report Type: 
  Country: None (occurrence: None)
  Receive Date: 20060329
  Receipt Date: 20060316
  Transmission Date: 20060701
  Serious: Yes (Death)
  Sender: FDA-Public Use
  Company Number: 2006033589

PATIENT
  Age: 50 Year
  Sex: Male

DRUGS (2)
  1. VFEND [Suspect]
     Indication: ASPERGILLOSIS
     Dosage: INTRAVENOUS
     Route: 042
     Dates: start: 20051128, end: 20051227
  2. ITRACONAZOLE [Suspect]
     Indication: ASPERGILLOSIS
     Dosage: ORAL
     Route: 048

REACTIONS (2)
  - DRUG INEFFECTIVE [None]
  - INTERSTITIAL LUNG DISEASE [None]
